FAERS Safety Report 16000777 (Version 1)
Quarter: 2019Q1

REPORT INFORMATION
  Report Type: Spontaneous
  Country: FR (occurrence: FR)
  Receive Date: 20190225
  Receipt Date: 20190225
  Transmission Date: 20190418
  Serious: Yes (Other)
  Sender: FDA-Public Use
  Company Number: FR-PFIZER INC-2019076954

PATIENT
  Age: 26 Year
  Sex: Female
  Weight: 52 kg

DRUGS (9)
  1. VINCRISTINE HOSPIRA [Suspect]
     Active Substance: VINCRISTINE
     Indication: T-CELL TYPE ACUTE LEUKAEMIA
     Dosage: 2 MG, 1X/DAY
     Route: 041
     Dates: start: 20190122, end: 20190122
  2. DARZALEX [Concomitant]
     Active Substance: DARATUMUMAB
     Indication: T-CELL TYPE ACUTE LEUKAEMIA
     Dosage: 832 MG, CYCLIC
     Route: 041
     Dates: start: 20190123, end: 20190123
  3. DOXORUBICINE TEVA [Concomitant]
     Active Substance: DOXORUBICIN
     Indication: T-CELL TYPE ACUTE LEUKAEMIA
     Dosage: 94 MG, CYCLIC
     Route: 041
     Dates: start: 20190122, end: 20190122
  4. PARACETAMOL PANPHARMA [Concomitant]
     Active Substance: ACETAMINOPHEN
     Indication: PREMEDICATION
     Dosage: 1 G, SINGLE
     Route: 041
     Dates: start: 20190122, end: 20190122
  5. EMEND [Concomitant]
     Active Substance: APREPITANT
     Indication: PREMEDICATION
     Dosage: UNK
     Route: 048
     Dates: start: 20190122, end: 20190124
  6. ONCASPAR [Concomitant]
     Active Substance: PEGASPARGASE
     Indication: T-CELL TYPE ACUTE LEUKAEMIA
     Dosage: 3900 IU, CYCLIC
     Route: 041
     Dates: start: 20190123, end: 20190123
  7. POLARAMINE [Concomitant]
     Active Substance: DEXCHLORPHENIRAMINE MALEATE
     Indication: PREMEDICATION
     Dosage: 5 MG, SINGLE
     Route: 042
     Dates: start: 20190123, end: 20190123
  8. METHYLPREDNISOLONE MYLAN [METHYLPREDNISOLONE HEMISUCCINATE] [Concomitant]
     Active Substance: METHYLPREDNISOLONE HEMISUCCINATE
     Indication: PREMEDICATION
     Dosage: 100 MG, SINGLE
     Route: 041
     Dates: start: 20190122, end: 20190122
  9. PREDNISONE ARROW [Concomitant]
     Active Substance: PREDNISONE
     Indication: PREMEDICATION
     Dosage: 80 MG, 1X/DAY
     Route: 048
     Dates: start: 20190123, end: 20190124

REACTIONS (1)
  - Blindness transient [Recovered/Resolved]

NARRATIVE: CASE EVENT DATE: 20190123
